FAERS Safety Report 8467483-1 (Version None)
Quarter: 2012Q2

REPORT INFORMATION
  Report Type: 
  Country: None (occurrence: None)
  Receive Date: 20120626
  Receipt Date: 20120618
  Transmission Date: 20120825
  Serious: Yes (Other)
  Sender: FDA-Public Use
  Company Number: GR-EISAI INC-E3810-05629-SPO-GR

PATIENT
  Sex: Female

DRUGS (1)
  1. RABEPRAZOLE SODIUM [Suspect]
     Route: 048
     Dates: start: 20070101

REACTIONS (4)
  - MUSCLE SPASMS [None]
  - ERYTHROPENIA [None]
  - PRURITUS [None]
  - LEUKOPENIA [None]
